FAERS Safety Report 16107326 (Version 1)
Quarter: 2019Q1

REPORT INFORMATION
  Report Type: Spontaneous
  Country: US (occurrence: US)
  Receive Date: 20190322
  Receipt Date: 20190322
  Transmission Date: 20190418
  Serious: No
  Sender: FDA-Public Use
  Company Number: US-SA-2019SA079693

PATIENT
  Age: 68 Year
  Sex: Female

DRUGS (1)
  1. AVAPRO [Suspect]
     Active Substance: IRBESARTAN
     Indication: HYPERTENSION
     Dosage: UNK UNK, UNK
     Dates: start: 20190205

REACTIONS (7)
  - Chest pain [Unknown]
  - Paraesthesia [Unknown]
  - Dizziness [Unknown]
  - Feeling abnormal [Unknown]
  - Nervousness [Unknown]
  - Headache [Unknown]
  - Nausea [Unknown]
